FAERS Safety Report 6164523-X (Version None)
Quarter: 2009Q2

REPORT INFORMATION
  Report Type: 
  Country: None (occurrence: None)
  Receive Date: 20090421
  Receipt Date: 20090415
  Transmission Date: 20091009
  Serious: Yes (Death)
  Sender: FDA-Public Use
  Company Number: 2009SP007802

PATIENT
  Age: 56 Year
  Sex: Male
  Weight: 55.3388 kg

DRUGS (5)
  1. PEGETRON (PEGINTERFERON ALFA-2B W/RIBAVIRIN) (PEGYLATED INTERFERON ALF [Suspect]
     Indication: HEPATITIS C
     Dosage: 80 MCG;SC
     Route: 058
     Dates: start: 20090220, end: 20090411
  2. PEGETRON (PEGINTERFERON ALFA-2B W/RIBAVIRIN) (PEGYLATED INTERFERON ALF [Suspect]
     Dosage: 800 MG;QD;PO
     Route: 048
     Dates: start: 20090220, end: 20090411
  3. PREDNISONE [Concomitant]
  4. SERAX [Concomitant]
  5. TORADOL [Concomitant]

REACTIONS (2)
  - DYSPNOEA [None]
  - REFUSAL OF TREATMENT BY PATIENT [None]
